FAERS Safety Report 5555165-5 (Version None)
Quarter: 2007Q4

REPORT INFORMATION
  Report Type: 
  Country: None (occurrence: None)
  Receive Date: 20071213
  Receipt Date: 20071119
  Transmission Date: 20080405
  Serious: Yes (Hospitalization)
  Sender: FDA-Public Use
  Company Number: CA-ASTRAZENECA-2007SE06547

PATIENT
  Age: 995 Month
  Sex: Male

DRUGS (3)
  1. ATACAND [Suspect]
     Route: 048
  2. LUPRON DEPOT-4 [Suspect]
     Indication: PROSTATE CANCER
     Dosage: 4 MONTHS INTERVAL
     Route: 030
     Dates: start: 20050804
  3. NORVASC [Concomitant]
     Route: 048

REACTIONS (3)
  - FLUID RETENTION [None]
  - HYPONATRAEMIA [None]
  - LOSS OF CONSCIOUSNESS [None]
